FAERS Safety Report 8024107-5 (Version None)
Quarter: 2011Q4

REPORT INFORMATION
  Report Type: 
  Country: None (occurrence: None)
  Receive Date: 20111130
  Receipt Date: 20110121
  Transmission Date: 20120403
  Serious: Yes (Hospitalization)
  Sender: FDA-Public Use
  Company Number: 316183

PATIENT
  Age: 25 Year
  Sex: Female
  Weight: 49.9 kg

DRUGS (5)
  1. LISINOPRIL [Concomitant]
  2. NOVOLOG [Suspect]
     Indication: TYPE 1 DIABETES MELLITUS
     Dosage: SUBCUTAN.-PUMP, 5 U, SUBCUTANEOUS
     Route: 058
     Dates: start: 20100628
  3. NOVOLOG [Suspect]
     Indication: TYPE 1 DIABETES MELLITUS
     Dosage: SUBCUTAN.-PUMP, 5 U, SUBCUTANEOUS
     Route: 058
     Dates: start: 20100628
  4. OMEPRAZOLE [Concomitant]
  5. KLONOPIN [Concomitant]

REACTIONS (5)
  - RETINOPATHY [None]
  - BLOOD PRESSURE DECREASED [None]
  - HEPATIC ENZYME INCREASED [None]
  - LIQUID PRODUCT PHYSICAL ISSUE [None]
  - DIABETIC KETOACIDOSIS [None]
